FAERS Safety Report 12210340 (Version 1)
Quarter: 2016Q1

REPORT INFORMATION
  Report Type: Spontaneous
  Country: US (occurrence: US)
  Receive Date: 20160325
  Receipt Date: 20160325
  Transmission Date: 20160526
  Serious: No
  Sender: FDA-Public Use
  Company Number: US-WEST-WARD PHARMACEUTICALS CORP.-US-H14001-15-01414

PATIENT
  Sex: Female
  Weight: 70.37 kg

DRUGS (5)
  1. PREDNISONE TABLETS USP [Suspect]
     Active Substance: PREDNISONE
     Indication: EXPOSURE TO TOXIC AGENT
     Route: 048
     Dates: start: 2015, end: 2015
  2. PREDNISONE TABLETS USP [Suspect]
     Active Substance: PREDNISONE
     Route: 048
     Dates: start: 2015, end: 2015
  3. MULTIVITAMIN [Concomitant]
     Active Substance: VITAMINS
     Indication: PRODUCT USED FOR UNKNOWN INDICATION
     Route: 065
  4. PREDNISONE TABLETS USP [Suspect]
     Active Substance: PREDNISONE
     Indication: SINUS DISORDER
     Route: 048
     Dates: start: 2015, end: 2015
  5. CLOBETASOL [Concomitant]
     Active Substance: CLOBETASOL
     Indication: PRODUCT USED FOR UNKNOWN INDICATION
     Route: 065

REACTIONS (14)
  - Abdominal discomfort [Recovering/Resolving]
  - Flatulence [Recovering/Resolving]
  - Insomnia [Recovering/Resolving]
  - Abdominal distension [Recovered/Resolved]
  - Dark circles under eyes [Recovering/Resolving]
  - Generalised oedema [Recovered/Resolved]
  - Contusion [Recovering/Resolving]
  - Cough [Recovering/Resolving]
  - Throat tightness [Recovering/Resolving]
  - Energy increased [Recovering/Resolving]
  - Dyspepsia [Recovering/Resolving]
  - Disturbance in attention [Recovering/Resolving]
  - Diarrhoea [Recovering/Resolving]
  - Speech disorder [Recovering/Resolving]

NARRATIVE: CASE EVENT DATE: 2015
